FAERS Safety Report 25180007 (Version 1)
Quarter: 2025Q2

REPORT INFORMATION
  Report Type: Spontaneous
  Country: US (occurrence: None)
  Receive Date: 20250409
  Receipt Date: 20250409
  Transmission Date: 20250717
  Serious: No
  Sender: FDA-CTU
  Company Number: None

PATIENT
  Age: 37 Year
  Sex: Female

DRUGS (1)
  1. GLATIRAMER ACETATE [Suspect]
     Active Substance: GLATIRAMER ACETATE
     Indication: Multiple sclerosis
     Route: 058
     Dates: start: 20221117

REACTIONS (5)
  - Injection site reaction [None]
  - Injection site erythema [None]
  - Injection site bruising [None]
  - Hyperhidrosis [None]
  - Headache [None]

NARRATIVE: CASE EVENT DATE: 20250402
